FAERS Safety Report 8599430 (Version 11)
Quarter: 2014Q1

REPORT INFORMATION
  Report Type: Report from Study
  Country: GB (occurrence: GB)
  Receive Date: 20120605
  Receipt Date: 20140102
  Transmission Date: 20141002
  Serious: Yes (Other)
  Sender: FDA-Public Use
  Company Number: GB-ROCHE-1072869

PATIENT
  Age: 59 Year
  Sex: Female
  Weight: 57.7 kg

DRUGS (2)
  1. VISMODEGIB [Suspect]
     Indication: BASAL CELL CARCINOMA
     Dosage: LAST DOSE PRIOR TO THE SAE ON 25/MAY/2012
     Route: 048
     Dates: start: 20120426, end: 20120525
  2. VISMODEGIB [Suspect]
     Route: 048
     Dates: start: 20120629, end: 20120719

REACTIONS (2)
  - Aspartate aminotransferase increased [Recovered/Resolved with Sequelae]
  - Alanine aminotransferase increased [Recovered/Resolved with Sequelae]
